FAERS Safety Report 19805080 (Version 2)
Quarter: 2021Q3

REPORT INFORMATION
  Report Type: Other
  Country: PE (occurrence: PE)
  Receive Date: 20210909
  Receipt Date: 20210909
  Transmission Date: 20211014
  Serious: Yes (Hospitalization)
  Sender: FDA-Public Use
  Company Number: PE-ROCHE-2904339

PATIENT
  Age: 85 Year
  Sex: Male

DRUGS (1)
  1. MABTHERA [Suspect]
     Active Substance: RITUXIMAB
     Indication: NON-HODGKIN^S LYMPHOMA
     Dosage: 12/AUG/2021
     Route: 042
     Dates: start: 20210519

REACTIONS (8)
  - Loss of consciousness [Recovered/Resolved]
  - Urinary incontinence [Unknown]
  - Asthenia [Unknown]
  - Syncope [Recovered/Resolved]
  - Dizziness [Unknown]
  - Depression [Unknown]
  - Decreased appetite [Unknown]
  - Weight decreased [Unknown]

NARRATIVE: CASE EVENT DATE: 20210817
